FAERS Safety Report 6373102-0 (Version None)
Quarter: 2009Q3

REPORT INFORMATION
  Report Type: 
  Country: None (occurrence: None)
  Receive Date: 20090924
  Receipt Date: 20090204
  Transmission Date: 20100115
  Serious: No
  Sender: FDA-Public Use
  Company Number: US-ASTRAZENECA-2009UW03327

PATIENT
  Age: 35 Year
  Sex: Female

DRUGS (1)
  1. SEROQUEL XR [Suspect]
     Dosage: 200 MG
     Route: 048
     Dates: start: 20090203, end: 20090203

REACTIONS (1)
  - HYPOAESTHESIA [None]
